FAERS Safety Report 14714983 (Version 1)
Quarter: 2018Q2

REPORT INFORMATION
  Report Type: Report from Study
  Country: JP (occurrence: JP)
  Receive Date: 20180404
  Receipt Date: 20180404
  Transmission Date: 20180711
  Serious: Yes (Other)
  Sender: FDA-Public Use
  Company Number: JP-ACTELION-A-CH2018-169847

PATIENT
  Age: 3 Year
  Sex: Male

DRUGS (9)
  1. OPSUMIT [Suspect]
     Active Substance: MACITENTAN
     Indication: PULMONARY ARTERIAL HYPERTENSION
     Dosage: 1 MG, QD
     Route: 048
     Dates: start: 20171117
  2. DIPYRIDAMOLE. [Concomitant]
     Active Substance: DIPYRIDAMOLE
  3. REVATIO [Concomitant]
     Active Substance: SILDENAFIL CITRATE
  4. GASTER [Concomitant]
     Active Substance: FAMOTIDINE
  5. FUROSEMIDE. [Concomitant]
     Active Substance: FUROSEMIDE
  6. ASPIRIN. [Concomitant]
     Active Substance: ASPIRIN
  7. ALDACTONE A [Concomitant]
     Active Substance: SPIRONOLACTONE
  8. WARFARIN [Concomitant]
     Active Substance: WARFARIN
  9. OXYGEN. [Concomitant]
     Active Substance: OXYGEN

REACTIONS (1)
  - Blood alkaline phosphatase increased [Not Recovered/Not Resolved]

NARRATIVE: CASE EVENT DATE: 20180118
